FAERS Safety Report 14259619 (Version 1)
Quarter: 2017Q4

REPORT INFORMATION
  Report Type: Not Available
  Country: None (occurrence: US)
  Receive Date: 20171207
  Receipt Date: 20171207
  Transmission Date: 20180321
  Serious: No
  Sender: FDA-Public Use
  Company Number: US-AKORN-68623

PATIENT
  Age: 68 Year
  Sex: Female

DRUGS (1)
  1. LATANOPROST 0.005% OPHTHALMIC SOLUTION [Suspect]
     Active Substance: LATANOPROST

REACTIONS (5)
  - Eye irritation [Recovered/Resolved]
  - Radical mastectomy [Unknown]
  - Dry eye [Unknown]
  - Foreign body sensation in eyes [Unknown]
  - Eye pain [Recovered/Resolved]
